FAERS Safety Report 9841488 (Version 1)
Quarter: 2014Q1

REPORT INFORMATION
  Report Type: Spontaneous
  Country: US (occurrence: None)
  Receive Date: 20140123
  Receipt Date: 20140123
  Transmission Date: 20141002
  Serious: No
  Sender: FDA-Public Use
  Company Number: None

PATIENT
  Age: 62 Year
  Sex: Female

DRUGS (1)
  1. LOSARTAN [Suspect]
     Indication: HYPERTENSION
     Dates: start: 20140102, end: 20140115

REACTIONS (4)
  - Erythema [None]
  - Angioedema [None]
  - Paraesthesia [None]
  - Pharyngeal oedema [None]
